FAERS Safety Report 8183916-2 (Version None)
Quarter: 2012Q1

REPORT INFORMATION
  Report Type: 
  Country: None (occurrence: None)
  Receive Date: 20120203
  Receipt Date: 20111206
  Transmission Date: 20120608
  Serious: No
  Sender: FDA-Public Use
  Company Number: 2011000208

PATIENT
  Age: 10 Year
  Sex: Female

DRUGS (1)
  1. ULESFIA [Suspect]
     Indication: LICE INFESTATION
     Dosage: 1 BOTTLE, TOPICAL
     Route: 061
     Dates: start: 20110915, end: 20110922

REACTIONS (2)
  - ABDOMINAL DISCOMFORT [None]
  - VOMITING [None]
